FAERS Safety Report 15496227 (Version 1)
Quarter: 2018Q4

REPORT INFORMATION
  Report Type: Spontaneous
  Country: US (occurrence: US)
  Receive Date: 20181012
  Receipt Date: 20181012
  Transmission Date: 20190205
  Serious: Yes (Other)
  Sender: FDA-Public Use
  Company Number: US-TEVA-2018-US-961803

PATIENT
  Age: 46 Year
  Sex: Female

DRUGS (1)
  1. CEFALEXIN TEVA [Suspect]
     Active Substance: CEPHALEXIN
     Route: 065

REACTIONS (1)
  - Dependence on respirator [Unknown]
